FAERS Safety Report 8398235-9 (Version None)
Quarter: 2012Q2

REPORT INFORMATION
  Report Type: 
  Country: None (occurrence: None)
  Receive Date: 20120531
  Receipt Date: 20120518
  Transmission Date: 20120825
  Serious: Yes (Other)
  Sender: FDA-Public Use
  Company Number: JP-ASTRAZENECA-2012SE34095

PATIENT
  Age: 44 Year
  Sex: Female

DRUGS (1)
  1. CAPRELSA [Suspect]
     Indication: THYROID CANCER
     Route: 048
     Dates: start: 20120507

REACTIONS (12)
  - METASTASES TO LUNG [None]
  - ABDOMINAL PAIN [None]
  - DIZZINESS [None]
  - DIARRHOEA [None]
  - ERYTHEMA [None]
  - PAIN IN EXTREMITY [None]
  - ARTHRALGIA [None]
  - BLOOD PRESSURE INCREASED [None]
  - PRURITUS [None]
  - BLOOD CREATININE INCREASED [None]
  - ACNE [None]
  - METASTASES TO LIVER [None]
